FAERS Safety Report 4487863-9 (Version None)
Quarter: 2004Q4

REPORT INFORMATION
  Report Type: 
  Country: None (occurrence: None)
  Receive Date: 20041027
  Receipt Date: 20041027
  Transmission Date: 20050328
  Serious: Yes (Other)
  Sender: FDA-Public Use
  Company Number: None

PATIENT
  Age: 51 Year
  Sex: Male

DRUGS (2)
  1. ASPIRIN [Suspect]
  2. VIOXX [Suspect]

REACTIONS (2)
  - NAUSEA [None]
  - VOMITING [None]
